FAERS Safety Report 4743714-6 (Version None)
Quarter: 2005Q3

REPORT INFORMATION
  Report Type: 
  Country: None (occurrence: None)
  Receive Date: 20050812
  Receipt Date: 20050420
  Transmission Date: 20060218
  Serious: Yes (Life-Threatening, Hospitalization, Other)
  Sender: FDA-Public Use
  Company Number: US-GLAXOSMITHKLINE-A0555028A

PATIENT
  Age: 31 Year
  Sex: Female
  Weight: 45.5 kg

DRUGS (5)
  1. LAMICTAL [Suspect]
     Route: 048
  2. PAXIL CR [Concomitant]
     Indication: DEPRESSION
     Dosage: 25MG PER DAY
     Route: 048
  3. SEROQUEL [Concomitant]
     Indication: DRUG USE FOR UNKNOWN INDICATION
     Dosage: 800MG PER DAY
  4. K-DUR 10 [Concomitant]
     Dosage: 20MEQ TWICE PER DAY
     Route: 048
  5. LOESTRIN 1.5/30 [Concomitant]
     Indication: ORAL CONTRACEPTION
     Route: 048

REACTIONS (7)
  - ABDOMINAL PAIN UPPER [None]
  - BLOOD CREATININE INCREASED [None]
  - DEHYDRATION [None]
  - NAUSEA [None]
  - RENAL FAILURE ACUTE [None]
  - URINARY TRACT INFECTION [None]
  - VOMITING [None]
